FAERS Safety Report 10760927 (Version 2)
Quarter: 2015Q1

REPORT INFORMATION
  Report Type: Spontaneous
  Country: JP (occurrence: JP)
  Receive Date: 20150204
  Receipt Date: 20150217
  Transmission Date: 20150721
  Serious: Yes (Hospitalization)
  Sender: FDA-Public Use
  Company Number: JP-JNJFOC-20150201132

PATIENT
  Age: 7 Decade
  Sex: Female

DRUGS (1)
  1. REMICADE [Suspect]
     Active Substance: INFLIXIMAB
     Indication: RHEUMATOID ARTHRITIS
     Route: 042
     Dates: start: 20150110

REACTIONS (4)
  - Pyrexia [Unknown]
  - Rash [Unknown]
  - Oropharyngeal pain [Unknown]
  - Rash vesicular [Unknown]

NARRATIVE: CASE EVENT DATE: 201501
